FAERS Safety Report 6335591-7 (Version None)
Quarter: 2009Q3

REPORT INFORMATION
  Report Type: 
  Country: None (occurrence: None)
  Receive Date: 20090831
  Receipt Date: 20090819
  Transmission Date: 20100115
  Serious: Yes (Hospitalization)
  Sender: FDA-Public Use
  Company Number: US-PFIZER INC-2009258076

PATIENT
  Sex: Female

DRUGS (1)
  1. NICOTROL [Suspect]

REACTIONS (2)
  - CARDIAC DISORDER [None]
  - PULMONARY FUNCTION TEST DECREASED [None]
